FAERS Safety Report 11785589 (Version 4)
Quarter: 2016Q3

REPORT INFORMATION
  Report Type: Report from Study
  Country: US (occurrence: US)
  Receive Date: 20151130
  Receipt Date: 20160706
  Transmission Date: 20161109
  Serious: Yes (Hospitalization, Other)
  Sender: FDA-Public Use
  Company Number: US-AMGEN-USASL2015124249

PATIENT
  Age: 70 Year
  Sex: Female

DRUGS (3)
  1. METHOTREXATE. [Suspect]
     Active Substance: METHOTREXATE
     Indication: PRODUCT USED FOR UNKNOWN INDICATION
     Dosage: UNK
     Route: 065
  2. ENBREL [Suspect]
     Active Substance: ETANERCEPT
     Indication: PSORIATIC ARTHROPATHY
     Dosage: 50 MG, QWK
     Route: 065
     Dates: start: 2009
  3. REMICADE [Suspect]
     Active Substance: INFLIXIMAB
     Indication: PRODUCT USED FOR UNKNOWN INDICATION
     Dosage: UNK
     Route: 065

REACTIONS (23)
  - Spinal laminectomy [Unknown]
  - Injection site erythema [Unknown]
  - Feeling abnormal [Unknown]
  - Arthropathy [Unknown]
  - Somnolence [Unknown]
  - Musculoskeletal stiffness [Unknown]
  - Myalgia [Unknown]
  - Psoriasis [Unknown]
  - Injection site haemorrhage [Unknown]
  - Spondylitis [Unknown]
  - Injection site pain [Unknown]
  - Fibromyalgia [Unknown]
  - Puncture site haemorrhage [Unknown]
  - Grip strength decreased [Unknown]
  - Cerebrovascular accident [Unknown]
  - Muscle spasms [Unknown]
  - Muscle tightness [Unknown]
  - Immune system disorder [Unknown]
  - Injection site pruritus [Unknown]
  - Skin burning sensation [Unknown]
  - Finger deformity [Unknown]
  - Musculoskeletal discomfort [Unknown]
  - Mobility decreased [Unknown]

NARRATIVE: CASE EVENT DATE: 20151120
